APPROVED DRUG PRODUCT: ADEFOVIR DIPIVOXIL
Active Ingredient: ADEFOVIR DIPIVOXIL
Strength: 10MG
Dosage Form/Route: TABLET;ORAL
Application: A202051 | Product #001 | TE Code: AB
Applicant: SIGMAPHARM LABORATORIES LLC
Approved: Aug 29, 2013 | RLD: No | RS: Yes | Type: RX